FAERS Safety Report 16342244 (Version 1)
Quarter: 2019Q2

REPORT INFORMATION
  Report Type: Spontaneous
  Country: US (occurrence: US)
  Receive Date: 20190522
  Receipt Date: 20190522
  Transmission Date: 20190711
  Serious: Yes (Other)
  Sender: FDA-Public Use
  Company Number: US-BRISTOL-MYERS SQUIBB COMPANY-BMS-2019-045558

PATIENT
  Age: 55 Year
  Sex: Male
  Weight: 85 kg

DRUGS (14)
  1. ATAZANAVIR SULFATE. [Suspect]
     Active Substance: ATAZANAVIR SULFATE
     Indication: HIV INFECTION
     Dosage: 300 MILLIGRAM, PER DAY
     Route: 048
  2. LIDOCAINE. [Interacting]
     Active Substance: LIDOCAINE
     Indication: PROCEDURAL PAIN
     Dosage: 120 MILLIGRAM, PER HOUR
     Route: 040
  3. ABACAVIR SULFATE/LAMIVUDINE [Concomitant]
     Active Substance: ABACAVIR SULFATE\LAMIVUDINE
     Indication: HIV INFECTION
     Dosage: UNK, PER DAY
     Route: 048
  4. HEPARIN [Concomitant]
     Active Substance: HEPARIN SODIUM
     Indication: PRODUCT USED FOR UNKNOWN INDICATION
     Dosage: 5000 INTERNATIONAL UNIT, Q8H
     Route: 058
  5. RITONAVIR. [Interacting]
     Active Substance: RITONAVIR
     Indication: HIV INFECTION
     Dosage: 100 MILLIGRAM, PER DAY
     Route: 048
  6. METOPROLOL SUCCINATE. [Concomitant]
     Active Substance: METOPROLOL SUCCINATE
     Indication: PRODUCT USED FOR UNKNOWN INDICATION
     Dosage: 25 MILLIGRAM, PER DAY
     Route: 048
  7. LIDOCAINE. [Interacting]
     Active Substance: LIDOCAINE
     Indication: PRODUCT USED FOR UNKNOWN INDICATION
     Dosage: INFUSION AT A RATE OF 2 MG/ KG/H FOR 2 HOURS
     Route: 065
  8. CIPROFLOXACIN. [Concomitant]
     Active Substance: CIPROFLOXACIN
     Indication: PRODUCT USED FOR UNKNOWN INDICATION
     Dosage: 400 MILLIGRAM, Q12H
     Route: 042
  9. ACETYLSALICYLIC ACID [Concomitant]
     Active Substance: ASPIRIN
     Indication: PRODUCT USED FOR UNKNOWN INDICATION
     Dosage: 325 MILLIGRAM, PER DAY
     Route: 048
  10. LIDOCAINE. [Interacting]
     Active Substance: LIDOCAINE
     Indication: PRODUCT USED FOR UNKNOWN INDICATION
     Dosage: LOW-DOSE CONTINUOUS IV LIDOCAINE INFUSION AT 1 MG/KG/H
     Route: 041
  11. VANCOMYCIN [Concomitant]
     Active Substance: VANCOMYCIN
     Indication: PRODUCT USED FOR UNKNOWN INDICATION
     Dosage: 1.25 GRAM, Q12H
     Route: 042
  12. CANDESARTAN. [Concomitant]
     Active Substance: CANDESARTAN
     Indication: PRODUCT USED FOR UNKNOWN INDICATION
     Dosage: 16 MILLIGRAM, PER DAY
     Route: 048
  13. ROSUVASTATIN. [Concomitant]
     Active Substance: ROSUVASTATIN
     Indication: PRODUCT USED FOR UNKNOWN INDICATION
     Dosage: 40 MILLIGRAM, PER DAY
     Route: 048
  14. FENTANYL. [Concomitant]
     Active Substance: FENTANYL
     Indication: ANALGESIC THERAPY
     Route: 042

REACTIONS (9)
  - Hypertension [Unknown]
  - Dizziness [Unknown]
  - Oxygen saturation decreased [Recovered/Resolved]
  - Sinus tachycardia [Unknown]
  - Labelled drug-drug interaction medication error [Unknown]
  - Unresponsive to stimuli [Recovered/Resolved]
  - Hyperhidrosis [Unknown]
  - Toxicity to various agents [Unknown]
  - Drug level increased [Unknown]
